FAERS Safety Report 20042004 (Version 1)
Quarter: 2021Q4

REPORT INFORMATION
  Report Type: Spontaneous
  Country: US (occurrence: US)
  Receive Date: 20211108
  Receipt Date: 20211108
  Transmission Date: 20220303
  Serious: No
  Sender: FDA-Public Use
  Company Number: US-SA-SAC20211103000430

PATIENT
  Sex: Female

DRUGS (1)
  1. DUPIXENT [Suspect]
     Active Substance: DUPILUMAB
     Dosage: UNK

REACTIONS (7)
  - Eczema [Recovered/Resolved]
  - Pruritus [Recovering/Resolving]
  - Erythema [Unknown]
  - Eczema [Unknown]
  - Dermatitis contact [Unknown]
  - Eczema nummular [Unknown]
  - Rash [Unknown]

NARRATIVE: CASE EVENT DATE: 20211001
